FAERS Safety Report 11582929 (Version 1)
Quarter: 2015Q4

REPORT INFORMATION
  Report Type: Spontaneous
  Country: US (occurrence: US)
  Receive Date: 20151001
  Receipt Date: 20151001
  Transmission Date: 20160304
  Serious: No
  Sender: FDA-Public Use
  Company Number: US-TORRENT-00000958

PATIENT
  Sex: Female

DRUGS (2)
  1. ESCITALOPRAM OXALATE- ESCITALOPRAM OXALATE TABLET [Suspect]
     Active Substance: ESCITALOPRAM OXALATE
     Indication: PRODUCT USED FOR UNKNOWN INDICATION
     Dosage: ONCE A DAY
  2. JOLESSA [Concomitant]
     Active Substance: ETHINYL ESTRADIOL\LEVONORGESTREL
     Indication: CONTRACEPTION
     Dosage: LEVONORGESTREL 0.15MG AND ETHINYLESTRADIOL 0.03MG

REACTIONS (3)
  - Hyperventilation [Unknown]
  - Heart rate increased [Unknown]
  - Dizziness [Unknown]
